FAERS Safety Report 25780016 (Version 1)
Quarter: 2025Q3

REPORT INFORMATION
  Report Type: Spontaneous
  Country: US (occurrence: None)
  Receive Date: 20250908
  Receipt Date: 20250908
  Transmission Date: 20251021
  Serious: No
  Sender: FDA-CTU
  Company Number: None

PATIENT
  Age: 28 Year
  Sex: Male

DRUGS (1)
  1. WELIREG [Suspect]
     Active Substance: BELZUTIFAN
     Indication: Phakomatosis
     Dosage: 120 MG DAILY ORAL ?
     Route: 048
     Dates: start: 20221123

REACTIONS (2)
  - Product use issue [None]
  - Self-medication [None]

NARRATIVE: CASE EVENT DATE: 20250908
